FAERS Safety Report 10334260 (Version 1)
Quarter: 2014Q3

REPORT INFORMATION
  Report Type: Spontaneous
  Country: US (occurrence: None)
  Receive Date: 20140721
  Receipt Date: 20140721
  Transmission Date: 20150326
  Serious: No
  Sender: FDA-Public Use
  Company Number: None

PATIENT
  Age: 51 Year
  Sex: Female
  Weight: 63.5 kg

DRUGS (1)
  1. CHLORAPREP [Suspect]
     Active Substance: CHLORHEXIDINE GLUCONATE\ISOPROPYL ALCOHOL
     Indication: PREOPERATIVE CARE
     Dates: start: 20140703, end: 20140703

REACTIONS (11)
  - Pruritus [None]
  - Rash [None]
  - Blister [None]
  - Secretion discharge [None]
  - Insomnia [None]
  - Paraesthesia [None]
  - Pain [None]
  - Erythema [None]
  - Swelling [None]
  - Gait disturbance [None]
  - Feeling hot [None]

NARRATIVE: CASE EVENT DATE: 20140703
